FAERS Safety Report 15370250 (Version 1)
Quarter: 2018Q3

REPORT INFORMATION
  Report Type: Spontaneous
  Country: US (occurrence: US)
  Receive Date: 20180904
  Receipt Date: 20180904
  Transmission Date: 20181010
  Serious: Yes (Hospitalization)
  Sender: FDA-Public Use
  Company Number: None

PATIENT
  Age: 44 Year
  Sex: Female
  Weight: 58.3 kg

DRUGS (1)
  1. CISPLATIN. [Suspect]
     Active Substance: CISPLATIN
     Dates: end: 20180821

REACTIONS (10)
  - Chills [None]
  - Dysuria [None]
  - Dyspnoea [None]
  - Hyponatraemia [None]
  - Neutrophil count decreased [None]
  - Abdominal pain [None]
  - Diarrhoea [None]
  - Pyrexia [None]
  - Leukopenia [None]
  - Aspiration [None]

NARRATIVE: CASE EVENT DATE: 20180823
